APPROVED DRUG PRODUCT: MYKACET
Active Ingredient: NYSTATIN; TRIAMCINOLONE ACETONIDE
Strength: 100,000 UNITS/GM;0.1%
Dosage Form/Route: OINTMENT;TOPICAL
Application: A062733 | Product #001
Applicant: COSETTE PHARMACEUTICALS INC
Approved: Mar 6, 1987 | RLD: No | RS: No | Type: DISCN